FAERS Safety Report 7604345-3 (Version None)
Quarter: 2011Q3

REPORT INFORMATION
  Report Type: 
  Country: None (occurrence: None)
  Receive Date: 20110712
  Receipt Date: 20110701
  Transmission Date: 20111222
  Serious: Yes (Other)
  Sender: FDA-Public Use
  Company Number: PHHY2011JP59299

PATIENT
  Age: 74 Year
  Sex: Male

DRUGS (4)
  1. ORAL IRRIGATION [Concomitant]
     Dosage: UNK
     Route: 048
  2. MEIACT [Concomitant]
     Dosage: UNK
     Route: 048
  3. ZOMETA [Suspect]
     Indication: METASTASES TO BONE
     Dosage: 4 MG, ONCE EVERY 4 WEEKS
     Route: 041
     Dates: start: 20100101
  4. LOXONIN [Concomitant]
     Dosage: UNK
     Route: 048

REACTIONS (1)
  - OSTEONECROSIS OF JAW [None]
